FAERS Safety Report 20226295 (Version 3)
Quarter: 2022Q1

REPORT INFORMATION
  Report Type: Report from Study
  Country: US (occurrence: None)
  Receive Date: 20211224
  Receipt Date: 20220310
  Transmission Date: 20220423
  Serious: Yes (Hospitalization)
  Sender: FDA-Public Use
  Company Number: US-ROCHE-2983869

PATIENT
  Age: 73 Year
  Sex: Male
  Weight: 99.8 kg

DRUGS (3)
  1. VENETOCLAX [Suspect]
     Active Substance: VENETOCLAX
     Indication: Chronic lymphocytic leukaemia
     Dosage: QD ON DAYS 1-28 OF CYCLES 3-14, TOTAL DOSE ADMINISTERED THIS COURSE: 200 MG, LAST ADMINISTERED DATE:
     Route: 048
     Dates: start: 20210106
  2. OBINUTUZUMAB [Suspect]
     Active Substance: OBINUTUZUMAB
     Indication: Chronic lymphocytic leukaemia
     Dosage: OVER 4 HOURS ON DAYS 1, 2, 8, AND 15 OF CYCLE 1 AND ON DAY 1 OF CYCLES 2-6, LAST ADMINISTERED DATE:
     Route: 042
     Dates: start: 20210106
  3. IBRUTINIB [Suspect]
     Active Substance: IBRUTINIB
     Indication: Chronic lymphocytic leukaemia
     Dosage: DAILY ON DAYS 1-28, TOTAL DOSE ADMINISTERED THIS COURSE: 280 MG, LAST ADMINISTERED DATE: 25/NOV/2021
     Route: 048
     Dates: start: 20210106

REACTIONS (5)
  - Atrial fibrillation [Recovered/Resolved]
  - Retroperitoneal haematoma [Recovered/Resolved]
  - Humerus fracture [Recovered/Resolved]
  - Seizure [Recovered/Resolved]
  - COVID-19 [Unknown]

NARRATIVE: CASE EVENT DATE: 20211125
